FAERS Safety Report 5264906-6 (Version None)
Quarter: 2007Q1

REPORT INFORMATION
  Report Type: 
  Country: None (occurrence: None)
  Receive Date: 20061117
  Receipt Date: 20060908
  Transmission Date: 20070707
  Serious: Yes (Other)
  Sender: FDA-Public Use
  Company Number: US-JNJFOC-20060704048

PATIENT
  Age: 75 Year
  Sex: Male

DRUGS (3)
  1. LEVAQUIN [Suspect]
     Indication: LOWER RESPIRATORY TRACT INFECTION
     Dosage: ORAL
     Route: 048
     Dates: start: 20060601, end: 20060601
  2. PREDNISONE TAB [Concomitant]
  3. ASPIRIN [Concomitant]

REACTIONS (2)
  - CONTUSION [None]
  - MUSCLE SPASMS [None]
